FAERS Safety Report 18234653 (Version 1)
Quarter: 2020Q3

REPORT INFORMATION
  Report Type: Spontaneous
  Country: US (occurrence: US)
  Receive Date: 20200904
  Receipt Date: 20200904
  Transmission Date: 20201103
  Serious: No
  Sender: FDA-Public Use
  Company Number: US-PFIZER INC-2020342044

PATIENT
  Sex: Female
  Weight: 63.5 kg

DRUGS (2)
  1. GEODON [Suspect]
     Active Substance: ZIPRASIDONE HYDROCHLORIDE\ZIPRASIDONE MESYLATE
     Indication: BIPOLAR DISORDER
  2. GEODON [Suspect]
     Active Substance: ZIPRASIDONE HYDROCHLORIDE\ZIPRASIDONE MESYLATE
     Indication: MOVEMENT DISORDER
     Dosage: UNK
     Route: 048

REACTIONS (5)
  - Sleep disorder [Unknown]
  - Condition aggravated [Recovered/Resolved]
  - Wrong technique in product usage process [Unknown]
  - Psychomotor hyperactivity [Unknown]
  - Movement disorder [Recovered/Resolved]
